FAERS Safety Report 22965751 (Version 5)
Quarter: 2024Q1

REPORT INFORMATION
  Report Type: Report from Study
  Country: MY (occurrence: MY)
  Receive Date: 20230921
  Receipt Date: 20240304
  Transmission Date: 20240409
  Serious: Yes (Other)
  Sender: FDA-Public Use
  Company Number: MY-TAKEDA-2023TUS090403

PATIENT
  Age: 51 Year
  Sex: Male
  Weight: 59.8 kg

DRUGS (6)
  1. IXAZOMIB [Suspect]
     Active Substance: IXAZOMIB
     Indication: Plasma cell myeloma
     Dosage: 4 MILLIGRAM
     Route: 048
     Dates: start: 20230821, end: 20230904
  2. IXAZOMIB [Suspect]
     Active Substance: IXAZOMIB
     Indication: Plasma cell myeloma refractory
     Dosage: UNK UNK, 1/WEEK
     Route: 048
  3. DEXAMETHASONE [Suspect]
     Active Substance: DEXAMETHASONE
     Indication: Plasma cell myeloma
     Dosage: 40 MILLIGRAM, 1/WEEK
     Route: 042
     Dates: start: 20230821, end: 20230904
  4. DARATUMUMAB [Suspect]
     Active Substance: DARATUMUMAB
     Indication: Plasma cell myeloma
     Dosage: 960 MILLIGRAM, 1/WEEK
     Route: 042
     Dates: start: 20230821, end: 20230904
  5. CIPROFLOXACIN [Concomitant]
     Active Substance: CIPROFLOXACIN
     Indication: Rhodococcus infection
     Dosage: 500 MILLIGRAM, BID
     Route: 048
     Dates: start: 20230401
  6. AUGMENTIN [Concomitant]
     Active Substance: AMOXICILLIN\CLAVULANATE POTASSIUM
     Indication: Rhodococcus infection
     Dosage: 875/125 MILLIGRAM, BID
     Route: 048
     Dates: start: 20230728, end: 20230921

REACTIONS (3)
  - Plasma cell myeloma refractory [Unknown]
  - Haemoglobin decreased [Recovered/Resolved]
  - Anaemia [Recovered/Resolved]

NARRATIVE: CASE EVENT DATE: 20230914
